FAERS Safety Report 13612771 (Version 1)
Quarter: 2017Q2

REPORT INFORMATION
  Report Type: Spontaneous
  Country: US (occurrence: US)
  Receive Date: 20170605
  Receipt Date: 20170605
  Transmission Date: 20170830
  Serious: No
  Sender: FDA-Public Use
  Company Number: US-ALLERGAN-1711963US

PATIENT
  Age: 57 Year
  Sex: Female

DRUGS (2)
  1. KYBELLA [Suspect]
     Active Substance: DEOXYCHOLIC ACID
     Indication: PRODUCT USED FOR UNKNOWN INDICATION
     Dosage: 1 DF, SINGLE
     Route: 058
     Dates: start: 20170117, end: 20170117
  2. KYBELLA [Suspect]
     Active Substance: DEOXYCHOLIC ACID
     Dosage: 1 DF, SINGLE
     Route: 058
     Dates: start: 20170227, end: 20170227

REACTIONS (3)
  - Drug ineffective [Unknown]
  - Injection site discomfort [Unknown]
  - Injection site swelling [Recovered/Resolved]
